FAERS Safety Report 12694416 (Version 1)
Quarter: 2016Q3

REPORT INFORMATION
  Report Type: Spontaneous
  Country: US (occurrence: US)
  Receive Date: 20160829
  Receipt Date: 20160829
  Transmission Date: 20161109
  Serious: Yes (Hospitalization)
  Sender: FDA-Public Use
  Company Number: US-ELI_LILLY_AND_COMPANY-US201606004858

PATIENT
  Sex: Male

DRUGS (4)
  1. HUMULIN R [Suspect]
     Active Substance: INSULIN HUMAN
     Indication: TYPE 1 DIABETES MELLITUS
     Dosage: SLIDING SCALE, PRN
     Route: 065
     Dates: start: 1986
  2. HUMULIN R [Suspect]
     Active Substance: INSULIN HUMAN
     Dosage: BASE AT 10 U, EACH EVENING
     Route: 065
     Dates: start: 1986
  3. HUMULIN R [Suspect]
     Active Substance: INSULIN HUMAN
     Dosage: BASE AT 19 U, EACH MORNING
     Route: 065
     Dates: start: 1986
  4. INSULIN GLARGINE [Concomitant]
     Active Substance: INSULIN GLARGINE

REACTIONS (3)
  - Cerebrovascular accident [Unknown]
  - Blood glucose increased [Not Recovered/Not Resolved]
  - Speech disorder [Unknown]

NARRATIVE: CASE EVENT DATE: 20160610
